FAERS Safety Report 4765894-9 (Version None)
Quarter: 2005Q3

REPORT INFORMATION
  Report Type: 
  Country: None (occurrence: None)
  Receive Date: 20050906
  Receipt Date: 20050823
  Transmission Date: 20060218
  Serious: No
  Sender: FDA-Public Use
  Company Number: 02100-JPN-05-0330

PATIENT
  Age: 75 Year
  Sex: Male

DRUGS (10)
  1. CILOSTAZOL [Suspect]
     Indication: CEREBRAL INFARCTION
     Dosage: 200 MG ORAL
     Route: 048
     Dates: start: 20050426, end: 20050611
  2. OLOPATADINE HYDROCHLORIDE [Concomitant]
  3. CANDESARTAN CILEXETIL [Concomitant]
  4. RANITIDINE HYDROCHLORIDE [Concomitant]
  5. AMLODIPINE BESYLATE [Concomitant]
  6. TIAPRIDE HYDROCHLORIDE [Concomitant]
  7. ZOPICLONE [Concomitant]
  8. BROTIZOLAM [Concomitant]
  9. CARBOCISTEINE [Concomitant]
  10. DOMPERIDONE [Concomitant]

REACTIONS (2)
  - MALAISE [None]
  - SUPRAVENTRICULAR TACHYCARDIA [None]
